FAERS Safety Report 9159534 (Version 1)
Quarter: 2013Q1

REPORT INFORMATION
  Report Type: Spontaneous
  Country: KR (occurrence: None)
  Receive Date: 20130220
  Receipt Date: 20130220
  Transmission Date: 20140127
  Serious: Yes (Other)
  Sender: FDA-Public Use
  Company Number: JP-2013-10358

PATIENT
  Age: 69 Year
  Sex: Male

DRUGS (3)
  1. OPC-13013 (CILOSTAZOL) TABLET [Suspect]
     Indication: CORONARY ARTERY DISEASE
     Route: 048
  2. ASPIRIN (ACETYLSALICYLIC ACID) TABLET [Suspect]
     Indication: CORONARY ARTERY DISEASE
     Route: 048
  3. CLOPIDOGREL (CLOPIDOGREL) TABLET [Suspect]
     Indication: CORONARY ARTERY DISEASE
     Route: 048

REACTIONS (1)
  - Angina unstable [None]
